FAERS Safety Report 19137962 (Version 1)
Quarter: 2021Q2

REPORT INFORMATION
  Report Type: Spontaneous
  Country: US (occurrence: US)
  Receive Date: 20210414
  Receipt Date: 20210414
  Transmission Date: 20210717
  Serious: No
  Sender: FDA-Public Use
  Company Number: US-GLAXOSMITHKLINE-US2021082739

PATIENT
  Age: 64 Year
  Sex: Female
  Weight: 69.31 kg

DRUGS (1)
  1. ZEJULA [Suspect]
     Active Substance: NIRAPARIB
     Indication: OVARIAN CANCER
     Dosage: 200 MG, QD
     Route: 048
     Dates: start: 202103

REACTIONS (5)
  - Energy increased [Unknown]
  - Blister [Unknown]
  - Sunburn [Unknown]
  - Asthenia [Unknown]
  - Pruritus [Unknown]

NARRATIVE: CASE EVENT DATE: 20210410
